FAERS Safety Report 8567899-9 (Version None)
Quarter: 2012Q3

REPORT INFORMATION
  Report Type: 
  Country: None (occurrence: None)
  Receive Date: 20120803
  Receipt Date: 20120720
  Transmission Date: 20120928
  Serious: Yes (Hospitalization)
  Sender: FDA-Public Use
  Company Number: FR-PFIZER INC-2012182541

PATIENT
  Age: 59 Year
  Sex: Female

DRUGS (14)
  1. CORDARONE [Suspect]
     Indication: PRODUCT USED FOR UNKNOWN INDICATION
     Dosage: UNK
     Dates: start: 20120518, end: 20120521
  2. CLAVULANATE POTASSIUM [Suspect]
     Dosage: 5 GRAM(S);3 TIMES A DAY
     Route: 042
     Dates: start: 20120523, end: 20120605
  3. MIDAZOLAM HCL [Suspect]
     Indication: PRODUCT USED FOR UNKNOWN INDICATION
     Dosage: UNK
     Route: 042
     Dates: start: 20120518, end: 20120525
  4. ZYVOX [Concomitant]
     Dosage: UNK
     Dates: start: 20120601, end: 20120609
  5. AUGMENTIN '500' [Suspect]
     Indication: PRODUCT USED FOR UNKNOWN INDICATION
     Dosage: 1 GRAM(S);3 TIMES A DAY
     Route: 042
     Dates: start: 20120519, end: 20120523
  6. ACETAMINOPHEN [Concomitant]
     Dosage: UNK
     Dates: start: 20120501
  7. LOVENOX [Concomitant]
     Dosage: UNK
     Dates: start: 20120501
  8. METRONIDAZOLE [Suspect]
     Dosage: UNK
     Route: 042
     Dates: start: 20120517, end: 20120519
  9. NEXIUM [Suspect]
     Indication: PRODUCT USED FOR UNKNOWN INDICATION
     Dosage: 40 MG, DAILY
     Route: 048
     Dates: start: 20120501, end: 20120609
  10. ZOLPIDEM TARTRATE [Concomitant]
     Dosage: UNK
     Dates: start: 20120607
  11. CIPROFLOXACIN HYDROCHLORIDE [Concomitant]
     Dosage: UNK
     Dates: start: 20120523, end: 20120529
  12. RIMACTANE [Concomitant]
     Dosage: UNK
     Dates: start: 20120606, end: 20120610
  13. CEFTRIAXONE [Suspect]
     Indication: PRODUCT USED FOR UNKNOWN INDICATION
     Dosage: UNK
     Route: 042
     Dates: start: 20120517, end: 20120519
  14. CRESTOR [Concomitant]
     Dosage: UNK

REACTIONS (1)
  - CHOLESTASIS [None]
